FAERS Safety Report 9276298 (Version 1)
Quarter: 2012Q4

REPORT INFORMATION
  Report Type: Spontaneous
  Country: US (occurrence: None)
  Receive Date: 20121012
  Receipt Date: 20121012
  Transmission Date: 20130627
  Serious: Yes (Other)
  Sender: FDA-Public Use
  Company Number: DSU-2012-07963

PATIENT
  Sex: Female

DRUGS (1)
  1. BENICAR (OLMESARTAN MEDOXOMIL)(20 MILLIGRAM, TABLET)(OLMESARTAN MEDOXOMIL) [Suspect]
     Route: 048
     Dates: start: 2012

REACTIONS (4)
  - Hypertension [None]
  - Chest pain [None]
  - Hypoaesthesia [None]
  - Breast pain [None]
